FAERS Safety Report 10128478 (Version 1)
Quarter: 2014Q2

REPORT INFORMATION
  Report Type: Spontaneous
  Country: US (occurrence: None)
  Receive Date: 20140425
  Receipt Date: 20140425
  Transmission Date: 20141212
  Serious: Yes (Other)
  Sender: FDA-Public Use
  Company Number: None

PATIENT
  Age: 34 Year
  Sex: Female

DRUGS (1)
  1. RELNATE DHA [Suspect]
     Indication: VITAMIN SUPPLEMENTATION
     Dosage: 1 CAPSULE
     Route: 048
     Dates: start: 20140409, end: 20140415

REACTIONS (2)
  - Product quality issue [None]
  - Product odour abnormal [None]
